FAERS Safety Report 15693585 (Version 1)
Quarter: 2018Q4

REPORT INFORMATION
  Report Type: Spontaneous
  Country: DE (occurrence: DE)
  Receive Date: 20181206
  Receipt Date: 20181206
  Transmission Date: 20190205
  Serious: Yes (Hospitalization, Other)
  Sender: FDA-Public Use
  Company Number: DE-AUROBINDO-AUR-APL-2018-058844

PATIENT
  Age: 11 Year
  Sex: Female

DRUGS (2)
  1. LEVOFLOXACIN. [Suspect]
     Active Substance: LEVOFLOXACIN
     Indication: INFECTIVE KERATITIS
     Dosage: UNK
     Route: 065
  2. GRAMICIDIN W/NEOMYCIN/POLYMYXIN B [Suspect]
     Active Substance: GRAMICIDIN\NEOMYCIN\POLYMYXIN B SULFATE
     Indication: INFECTIVE KERATITIS
     Dosage: UNK
     Route: 065

REACTIONS (3)
  - Disease progression [Recovering/Resolving]
  - Infective keratitis [Recovering/Resolving]
  - Staphylococcal infection [Recovering/Resolving]
